FAERS Safety Report 8605437-2 (Version None)
Quarter: 2012Q3

REPORT INFORMATION
  Report Type: 
  Country: None (occurrence: None)
  Receive Date: 20120820
  Receipt Date: 20120816
  Transmission Date: 20120928
  Serious: Yes (Death)
  Sender: FDA-Public Use
  Company Number: SE-ASTRAZENECA-2012SE57657

PATIENT
  Sex: Female

DRUGS (3)
  1. ANGIOMAX [Suspect]
     Route: 042
  2. BRILINTA [Suspect]
     Route: 048
  3. WARFARIN SODIUM [Suspect]
     Route: 048

REACTIONS (1)
  - PULMONARY HAEMORRHAGE [None]
